FAERS Safety Report 4442623-X (Version None)
Quarter: 2004Q3

REPORT INFORMATION
  Report Type: 
  Country: None (occurrence: None)
  Receive Date: 20040903
  Receipt Date: 20040720
  Transmission Date: 20050211
  Serious: Yes (Other)
  Sender: FDA-Public Use
  Company Number: 2004UW15279

PATIENT
  Age: 74 Year
  Sex: Female
  Weight: 61.2356 kg

DRUGS (13)
  1. CRESTOR [Suspect]
     Indication: BLOOD CHOLESTEROL INCREASED
  2. CRESTOR [Suspect]
     Indication: BLOOD TRIGLYCERIDES INCREASED
  3. MULTIVITAMIN [Concomitant]
  4. LYSINE [Concomitant]
  5. ASPIRIN [Concomitant]
  6. WELLBUTRIN [Concomitant]
  7. CELEXA [Concomitant]
  8. CLARINEX [Concomitant]
  9. APO-HYDRO [Concomitant]
  10. FOSAMAX [Concomitant]
  11. CALCIUM [Concomitant]
  12. DEPAKOTE [Concomitant]
  13. ADVICOR [Concomitant]

REACTIONS (2)
  - BACK PAIN [None]
  - GAIT DISTURBANCE [None]
